FAERS Safety Report 16381997 (Version 3)
Quarter: 2019Q3

REPORT INFORMATION
  Report Type: Spontaneous
  Country: US (occurrence: US)
  Receive Date: 20190603
  Receipt Date: 20190926
  Transmission Date: 20191004
  Serious: Yes (Hospitalization, Other)
  Sender: FDA-Public Use
  Company Number: PHEH2019US022608

PATIENT
  Age: 25 Year
  Sex: Male
  Weight: 78 kg

DRUGS (3)
  1. BLINATUMOMAB [Suspect]
     Active Substance: BLINATUMOMAB
     Indication: ACUTE LYMPHOCYTIC LEUKAEMIA
     Dosage: UNK
     Route: 065
  2. KYMRIAH [Suspect]
     Active Substance: TISAGENLECLEUCEL
     Indication: B-CELL TYPE ACUTE LEUKAEMIA
     Dosage: TOTAL CELL COUNT: 1.27X10^9,VIABLE T-CELL DOSE: 0.7 X 10^8
     Route: 042
     Dates: start: 20190514
  3. KYMRIAH [Suspect]
     Active Substance: TISAGENLECLEUCEL
     Indication: ACUTE LYMPHOCYTIC LEUKAEMIA

REACTIONS (10)
  - Fungal infection [Recovered/Resolved with Sequelae]
  - Cytokine release syndrome [Recovered/Resolved]
  - Hypotension [Recovered/Resolved]
  - Rash [Unknown]
  - Graft versus host disease [Unknown]
  - Acute lymphocytic leukaemia [Not Recovered/Not Resolved]
  - Pyrexia [Recovered/Resolved]
  - Rash erythematous [Recovered/Resolved]
  - Cytokine release syndrome [Recovered/Resolved]
  - Coagulopathy [Recovering/Resolving]

NARRATIVE: CASE EVENT DATE: 20190519
